FAERS Safety Report 18538258 (Version 1)
Quarter: 2020Q4

REPORT INFORMATION
  Report Type: Other
  Country: BR (occurrence: BR)
  Receive Date: 20201124
  Receipt Date: 20201124
  Transmission Date: 20210114
  Serious: Yes (Death)
  Sender: FDA-Public Use
  Company Number: BR-B.BRAUN MEDICAL INC.-2096225

PATIENT
  Age: 7 Month
  Sex: Female
  Weight: 4.5 kg

DRUGS (2)
  1. FUROSEMIDE. [Concomitant]
     Active Substance: FUROSEMIDE
  2. SODIUM CHLORIDE INJECTION USP 0264-7800-09 [Suspect]
     Active Substance: SODIUM CHLORIDE

REACTIONS (1)
  - Drug ineffective [None]
